FAERS Safety Report 5396922-8 (Version None)
Quarter: 2007Q3

REPORT INFORMATION
  Report Type: 
  Country: None (occurrence: None)
  Receive Date: 20070718
  Receipt Date: 20060830
  Transmission Date: 20080115
  Serious: Yes (Other)
  Sender: FDA-Public Use
  Company Number: 2006108595

PATIENT
  Age: 34 Year
  Sex: Male
  Weight: 72.5755 kg

DRUGS (2)
  1. CELEBREX [Suspect]
  2. BEXTRA [Suspect]

REACTIONS (2)
  - CHEST PAIN [None]
  - HYPERTENSION [None]
